FAERS Safety Report 5137234-7 (Version None)
Quarter: 2006Q4

REPORT INFORMATION
  Report Type: 
  Country: None (occurrence: None)
  Receive Date: 20061030
  Receipt Date: 20050922
  Transmission Date: 20070319
  Serious: No
  Sender: FDA-Public Use
  Company Number: US-GLAXOSMITHKLINE-A0575441A

PATIENT
  Sex: Female

DRUGS (8)
  1. ADVAIR HFA [Suspect]
     Indication: ASTHMA
     Dosage: 1PUFF TWICE PER DAY
     Route: 055
  2. SYNTHROID [Concomitant]
  3. VASOTEC [Concomitant]
  4. MULTI-VITAMIN [Concomitant]
  5. CALTRATE [Concomitant]
  6. ASCORBIC ACID [Concomitant]
  7. INSULIN [Concomitant]
  8. FOSAMAX [Concomitant]

REACTIONS (2)
  - GINGIVAL DISORDER [None]
  - GINGIVAL RECESSION [None]
